FAERS Safety Report 4512999-3 (Version None)
Quarter: 2004Q4

REPORT INFORMATION
  Report Type: 
  Country: None (occurrence: None)
  Receive Date: 20041124
  Receipt Date: 20041115
  Transmission Date: 20050328
  Serious: Yes (Hospitalization)
  Sender: FDA-Public Use
  Company Number: 234632K04USA

PATIENT
  Age: 63 Year
  Sex: Female

DRUGS (6)
  1. REBIF [Suspect]
     Indication: MULTIPLE SCLEROSIS
     Dosage: 44 MCG, 3 IN 1 WEEKS
     Dates: start: 20030618
  2. AMANTADINE (AMANTADINE) [Concomitant]
  3. CARBIDOPA (CARBIDOPA) [Concomitant]
  4. LEVOXYL [Concomitant]
  5. BACLOFEN [Concomitant]
  6. AMBIEN [Concomitant]

REACTIONS (2)
  - DEEP VEIN THROMBOSIS [None]
  - PIGMENTATION DISORDER [None]
